FAERS Safety Report 9358330 (Version 3)
Quarter: 2013Q4

REPORT INFORMATION
  Report Type: Spontaneous
  Country: US (occurrence: US)
  Receive Date: 20130620
  Receipt Date: 20131211
  Transmission Date: 20140711
  Serious: Yes (Hospitalization)
  Sender: FDA-Public Use
  Company Number: US-INCYTE CORPORATION-2013IN001277

PATIENT
  Age: 49 Year
  Sex: Female
  Weight: 96.9 kg

DRUGS (18)
  1. JAKAFI [Suspect]
     Indication: POLYCYTHAEMIA VERA
     Dosage: NOT SPECIFIED
     Dates: start: 20121020, end: 20130118
  2. JAKAFI [Suspect]
     Dosage: 20 MG, BID
     Route: 048
     Dates: start: 201303
  3. DAPSONE [Concomitant]
     Dosage: 50 MG, BID
     Route: 048
  4. PENICILLIN VK [Concomitant]
     Dosage: 500 MG, QD
     Route: 048
  5. TACROLIMUS [Concomitant]
     Dosage: 2 MG, BID
     Route: 048
  6. OMEPRAZOLE [Concomitant]
     Dosage: 20 MG, QD
     Route: 048
  7. OSCAL D [Concomitant]
     Dosage: 500/200, TID
     Route: 048
  8. VITAMIN D3 [Concomitant]
     Dosage: 2000 UT, QD
     Route: 048
  9. CENTRUM SILVER [Concomitant]
     Dosage: DAILY
     Route: 048
  10. B COMPLEX [Concomitant]
     Dosage: DAILY
     Route: 048
  11. FENTANYL [Concomitant]
     Dosage: 12 MCG, Q72 HOURS
     Route: 062
  12. DILAUDID [Concomitant]
     Indication: PAIN
     Dosage: 2 MG, Q4 HOURS PRN
     Route: 048
  13. AMITRIPTYLINE [Concomitant]
     Dosage: 10 MG, UNK
     Route: 048
  14. AMITRIPTYLINE [Concomitant]
     Dosage: 25 MG, QHS
     Route: 048
  15. TYLENOL [Concomitant]
     Indication: PAIN
     Dosage: 500 MG, Q6 HOURS, PRN
     Route: 048
  16. HYDROXYZINE [Concomitant]
     Indication: PRURITUS
     Dosage: 25 MG Q6 HOURS, PRN
     Route: 048
  17. ATIVAN [Concomitant]
     Indication: NAUSEA
     Dosage: 0.5-1.0 MG, Q6 HOURS, PRN
     Route: 048
  18. BENADRYL [Concomitant]
     Indication: INSOMNIA
     Dosage: 25 MG, QHS, PRN
     Route: 048

REACTIONS (11)
  - Stem cell transplant [Unknown]
  - Staphylococcal infection [Recovered/Resolved]
  - Intracranial venous sinus thrombosis [Recovered/Resolved]
  - Renal failure [Recovering/Resolving]
  - Heparin-induced thrombocytopenia [Unknown]
  - Bone pain [Unknown]
  - Fatigue [Unknown]
  - Paraesthesia [Unknown]
  - Fungal skin infection [Unknown]
  - Drug ineffective [Unknown]
  - Dizziness [Unknown]
